FAERS Safety Report 11835401 (Version 1)
Quarter: 2015Q4

REPORT INFORMATION
  Report Type: Report from Study
  Country: CA (occurrence: CA)
  Receive Date: 20151215
  Receipt Date: 20151215
  Transmission Date: 20160305
  Serious: Yes (Hospitalization, Other)
  Sender: FDA-Public Use
  Company Number: CA-AMGEN-CANSL2015131291

PATIENT
  Age: 76 Year
  Sex: Female

DRUGS (2)
  1. ACTONEL [Concomitant]
     Active Substance: RISEDRONATE SODIUM
  2. PROLIA [Suspect]
     Active Substance: DENOSUMAB
     Indication: OSTEOPOROSIS
     Dosage: UNK
     Route: 065
     Dates: start: 20150106

REACTIONS (5)
  - Ileostomy [Unknown]
  - Ankle operation [Unknown]
  - Arthritis [Unknown]
  - Fall [Unknown]
  - Foot operation [Unknown]

NARRATIVE: CASE EVENT DATE: 20151204
